FAERS Safety Report 16117492 (Version 1)
Quarter: 2019Q1

REPORT INFORMATION
  Report Type: Spontaneous
  Country: US (occurrence: US)
  Receive Date: 20190221
  Receipt Date: 20190221
  Transmission Date: 20190418
  Serious: Yes (Hospitalization, Other)
  Sender: FDA-Public Use
  Company Number: None

PATIENT
  Age: 69 Year
  Sex: Male
  Weight: 124.4 kg

DRUGS (1)
  1. DABIGATRAN [Suspect]
     Active Substance: DABIGATRAN
     Indication: ATRIAL FIBRILLATION
     Route: 048
     Dates: start: 20160311, end: 20181030

REACTIONS (4)
  - Melaena [None]
  - Cholangiocarcinoma [None]
  - Haemorrhage [None]
  - Therapy cessation [None]

NARRATIVE: CASE EVENT DATE: 20181030
